FAERS Safety Report 25533702 (Version 5)
Quarter: 2025Q4

REPORT INFORMATION
  Report Type: Spontaneous
  Country: US (occurrence: US)
  Receive Date: 20250709
  Receipt Date: 20251214
  Transmission Date: 20260118
  Serious: Yes (Hospitalization, Other)
  Sender: SANOFI AVENTIS
  Company Number: US-SA-2025SA190746

PATIENT
  Age: 64 Year
  Sex: Male
  Weight: 70.45 kg

DRUGS (25)
  1. FABRAZYME [Suspect]
     Active Substance: AGALSIDASE BETA
     Indication: Fabry^s disease
     Dosage: 85 MG, QW
     Route: 042
     Dates: start: 200802, end: 2025
  2. FABRAZYME [Suspect]
     Active Substance: AGALSIDASE BETA
     Dosage: 85 MG, QOW
     Route: 042
     Dates: start: 2025, end: 2025
  3. FABRAZYME [Suspect]
     Active Substance: AGALSIDASE BETA
     Dosage: 85 MG, QOW
     Route: 042
     Dates: start: 2025, end: 2025
  4. SODIUM CHLORIDE [Concomitant]
     Active Substance: SODIUM CHLORIDE
     Dosage: UNK
  5. EPINEPHRINE [Concomitant]
     Active Substance: EPINEPHRINE
     Dosage: UNK
  6. STERILE WATER [Concomitant]
     Active Substance: WATER
     Dosage: UNK
  7. FLOMAX [Concomitant]
     Active Substance: TAMSULOSIN HYDROCHLORIDE
     Dosage: UNK
  8. COLACE [Concomitant]
     Active Substance: DOCUSATE SODIUM
     Dosage: UNK
  9. CARAFATE [Concomitant]
     Active Substance: SUCRALFATE
     Dosage: UNK
  10. ADVAIR HFA [Concomitant]
     Active Substance: FLUTICASONE PROPIONATE\SALMETEROL XINAFOATE
     Dosage: UNK
  11. PERCOCET [Concomitant]
     Active Substance: ACETAMINOPHEN\OXYCODONE HYDROCHLORIDE
     Dosage: UNK
  12. SODIUM CHLORIDE [Concomitant]
     Active Substance: SODIUM CHLORIDE
     Dosage: UNK
  13. LIVALO [Concomitant]
     Active Substance: PITAVASTATIN CALCIUM
     Dosage: UNK
  14. VORICONAZOLE [Concomitant]
     Active Substance: VORICONAZOLE
     Dosage: UNK
  15. ENTRESTO [Concomitant]
     Active Substance: SACUBITRIL\VALSARTAN
     Dosage: UNK
  16. AVODART [Concomitant]
     Active Substance: DUTASTERIDE
     Dosage: UNK
  17. NORVASC [Concomitant]
     Active Substance: AMLODIPINE BESYLATE
     Dosage: UNK
  18. PROAIR HFA [Concomitant]
     Active Substance: ALBUTEROL SULFATE
     Dosage: UNK
  19. PREDNISONE [Concomitant]
     Active Substance: PREDNISONE
     Dosage: UNK
  20. TEGRETOL [Concomitant]
     Active Substance: CARBAMAZEPINE
     Dosage: UNK
  21. PROGRAF [Concomitant]
     Active Substance: TACROLIMUS
     Dosage: UNK
  22. VITAMIN D3 [Concomitant]
     Active Substance: CHOLECALCIFEROL
     Dosage: UNK
  23. XYZAL [Concomitant]
     Active Substance: LEVOCETIRIZINE DIHYDROCHLORIDE
     Dosage: UNK
  24. TORSEMIDE [Concomitant]
     Active Substance: TORSEMIDE
     Dosage: UNK
  25. COZAAR [Concomitant]
     Active Substance: LOSARTAN POTASSIUM
     Dosage: UNK

REACTIONS (6)
  - Complications of transplanted kidney [Unknown]
  - Pneumonia [Unknown]
  - COVID-19 [Unknown]
  - Oedema peripheral [Unknown]
  - Hospitalisation [Unknown]
  - Inappropriate schedule of product administration [Unknown]

NARRATIVE: CASE EVENT DATE: 20080201
